FAERS Safety Report 9363029 (Version 1)
Quarter: 2013Q2

REPORT INFORMATION
  Report Type: Spontaneous
  Country: US (occurrence: None)
  Receive Date: 20130621
  Receipt Date: 20130621
  Transmission Date: 20140414
  Serious: Yes (Hospitalization)
  Sender: FDA-Public Use
  Company Number: None

PATIENT
  Age: 83 Year
  Sex: Male
  Weight: 77 kg

DRUGS (3)
  1. BEVACIZUMAB (RHUMAB VEGF) (704865) [Suspect]
  2. CARBOPLATIN [Suspect]
  3. PACLITAXEL (TAXOL) [Suspect]

REACTIONS (7)
  - Diarrhoea [None]
  - Haematuria [None]
  - Confusional state [None]
  - Aggression [None]
  - Delirium [None]
  - Cerebrovascular accident [None]
  - Cognitive disorder [None]
